FAERS Safety Report 11068043 (Version 2)
Quarter: 2015Q2

REPORT INFORMATION
  Report Type: Spontaneous
  Country: US (occurrence: US)
  Receive Date: 20150427
  Receipt Date: 20150619
  Transmission Date: 20150821
  Serious: No
  Sender: FDA-Public Use
  Company Number: US-009507513-1504USA022060

PATIENT
  Sex: Female
  Weight: 126.8 kg

DRUGS (1)
  1. NEXPLANON [Suspect]
     Active Substance: ETONOGESTREL
     Indication: CONTRACEPTION
     Dosage: UNK
     Route: 059
     Dates: start: 20140819, end: 20150506

REACTIONS (2)
  - Device breakage [Recovered/Resolved]
  - Device kink [Recovered/Resolved]
